FAERS Safety Report 16177856 (Version 2)
Quarter: 2019Q2

REPORT INFORMATION
  Report Type: Spontaneous
  Country: ES (occurrence: ES)
  Receive Date: 20190410
  Receipt Date: 20190423
  Transmission Date: 20190711
  Serious: Yes (Hospitalization)
  Sender: FDA-Public Use
  Company Number: ES-PFIZER INC-2019155563

PATIENT
  Age: 72 Year
  Sex: Female

DRUGS (7)
  1. METAMIZOLE SODIUM [Suspect]
     Active Substance: METAMIZOLE SODIUM
     Dosage: UNK
  2. PROPRANOLOL HYDROCHLORIDE. [Suspect]
     Active Substance: PROPRANOLOL HYDROCHLORIDE
     Dosage: 40 UNK
     Route: 065
  3. RAMIPRIL. [Suspect]
     Active Substance: RAMIPRIL
     Dosage: 5 UNK
     Route: 048
  4. ADIRO [Suspect]
     Active Substance: ASPIRIN
     Dosage: 100 UNK
     Route: 065
  5. NOCTAMID [Suspect]
     Active Substance: LORMETAZEPAM
     Dosage: UNK
     Route: 065
  6. VELMETIA [Suspect]
     Active Substance: METFORMIN\SITAGLIPTIN
     Dosage: UNK, VELMETIA 50/1000 STRENGTH
  7. ATORVASTATIN CALCIUM. [Suspect]
     Active Substance: ATORVASTATIN CALCIUM
     Dosage: 20 UNK

REACTIONS (1)
  - Cardiac failure [Unknown]
